FAERS Safety Report 10028346 (Version 2)
Quarter: 2014Q3

REPORT INFORMATION
  Report Type: Spontaneous
  Country: US (occurrence: US)
  Receive Date: 20140321
  Receipt Date: 20140715
  Transmission Date: 20150326
  Serious: Yes (Other)
  Sender: FDA-Public Use
  Company Number: US-UCBSA-114644

PATIENT
  Age: 35 Year
  Sex: Female

DRUGS (2)
  1. KEPPRA XR [Suspect]
     Active Substance: LEVETIRACETAM
     Indication: PARTIAL SEIZURES
  2. KEPPRA XR [Suspect]
     Active Substance: LEVETIRACETAM
     Indication: GENERALISED TONIC-CLONIC SEIZURE
     Dosage: 1500 MG, 2X/DAY (BID)
     Dates: start: 200901, end: 20140629

REACTIONS (16)
  - Decreased appetite [Recovered/Resolved]
  - Fall [Unknown]
  - Bladder pain [Recovered/Resolved]
  - Rash [Recovered/Resolved]
  - Ligament sprain [Unknown]
  - Bladder dilatation [Recovered/Resolved]
  - Inappropriate schedule of drug administration [Unknown]
  - Generalised tonic-clonic seizure [Recovered/Resolved]
  - Hepatomegaly [Recovering/Resolving]
  - Malnutrition [Recovered/Resolved]
  - Lip injury [Unknown]
  - Contusion [Unknown]
  - Urine odour abnormal [Recovered/Resolved]
  - Intervertebral disc degeneration [Unknown]
  - Asthenia [Recovering/Resolving]
  - Dysuria [Recovered/Resolved]

NARRATIVE: CASE EVENT DATE: 200901
